FAERS Safety Report 5271441-8 (Version None)
Quarter: 2007Q1

REPORT INFORMATION
  Report Type: 
  Country: None (occurrence: None)
  Receive Date: 20070321
  Receipt Date: 20070314
  Transmission Date: 20070707
  Serious: Yes (Disabling)
  Sender: FDA-Public Use
  Company Number: US-BOEHRINGER INGELHEIM PHARMACEUTICALS, INC.-2007-BP-03386BP

PATIENT
  Age: 65 Year
  Sex: Male

DRUGS (6)
  1. FLOMAX [Suspect]
     Indication: BENIGN PROSTATIC HYPERPLASIA
  2. ISORDIL [Concomitant]
  3. PRILOSEC [Concomitant]
  4. REGLAN [Concomitant]
  5. MEVACOR [Concomitant]
  6. ATENOLOL [Concomitant]

REACTIONS (1)
  - EYE OPERATION COMPLICATION [None]
